FAERS Safety Report 13454951 (Version 2)
Quarter: 2017Q2

REPORT INFORMATION
  Report Type: Report from Study
  Country: JP (occurrence: JP)
  Receive Date: 20170418
  Receipt Date: 20170421
  Transmission Date: 20170830
  Serious: Yes (Other)
  Sender: FDA-Public Use
  Company Number: JP-PFIZER INC-2017168577

PATIENT
  Age: 55 Year
  Sex: Male

DRUGS (16)
  1. DOXIL [Suspect]
     Active Substance: DOXORUBICIN HYDROCHLORIDE
     Dosage: 20 MG/M2, ONCE EVERY 4 WEEKS
     Route: 042
     Dates: start: 20121127, end: 20121127
  2. VFEND [Concomitant]
     Active Substance: VORICONAZOLE
     Dosage: 400 MG, 1X/DAY
     Route: 048
     Dates: start: 20121227
  3. CORTRIL [Concomitant]
     Active Substance: HYDROCORTISONE
     Dosage: 20 MG, 1X/DAY
     Route: 048
     Dates: start: 20121214
  4. BLOPRESS [Concomitant]
     Active Substance: CANDESARTAN CILEXETIL
     Dosage: 8 MG, 1X/DAY
     Route: 048
     Dates: start: 20120905
  5. DIFLUCAN [Suspect]
     Active Substance: FLUCONAZOLE
     Dosage: UNK
     Route: 048
     Dates: end: 20130105
  6. ZITHROMAC [Concomitant]
     Active Substance: AZITHROMYCIN DIHYDRATE
     Dosage: 1200 MG, WEEKLY
     Route: 048
     Dates: start: 20120827
  7. ISENTRESS [Concomitant]
     Active Substance: RALTEGRAVIR POTASSIUM
     Dosage: 400 MG, 2X/DAY
     Route: 048
     Dates: start: 20121113
  8. AMBISOME [Concomitant]
     Active Substance: AMPHOTERICIN B
     Dosage: 200 MG, 1X/DAY
     Dates: start: 20121213, end: 20121226
  9. DOXIL [Suspect]
     Active Substance: DOXORUBICIN HYDROCHLORIDE
     Dosage: 20 MG/M2, ONCE EVERY 4 WEEKS
     Route: 042
     Dates: start: 20130417, end: 20130417
  10. SAMTIREL [Concomitant]
     Active Substance: ATOVAQUONE
     Dosage: 750 MG, 2X/DAY
     Route: 048
  11. DIFLUCAN [Suspect]
     Active Substance: FLUCONAZOLE
     Dosage: 400 MG, 1X/DAY
     Route: 048
     Dates: start: 20121115, end: 20121212
  12. EPZICOM [Concomitant]
     Active Substance: ABACAVIR SULFATE\LAMIVUDINE
     Dosage: 1 DF, 1X/DAY
     Route: 048
     Dates: start: 20121113
  13. DIFLUCAN [Suspect]
     Active Substance: FLUCONAZOLE
     Dosage: 800 MG, 1X/DAY
     Route: 048
     Dates: start: 20121003, end: 20121114
  14. DOXIL [Suspect]
     Active Substance: DOXORUBICIN HYDROCHLORIDE
     Dosage: 20 MG/M2, ONCE EVERY 4 WEEKS
     Route: 042
     Dates: start: 20121025, end: 20121025
  15. CORTRIL [Concomitant]
     Active Substance: HYDROCORTISONE
     Indication: ADRENAL INSUFFICIENCY
     Dosage: 10 MG, 1X/DAY
     Route: 048
     Dates: start: 20121117, end: 20121120
  16. CORTRIL [Concomitant]
     Active Substance: HYDROCORTISONE
     Dosage: 30 MG, 1X/DAY
     Route: 048
     Dates: start: 20121121, end: 20121213

REACTIONS (1)
  - Adrenal insufficiency [Recovered/Resolved]

NARRATIVE: CASE EVENT DATE: 20121121
